FAERS Safety Report 6795060-7 (Version None)
Quarter: 2010Q2

REPORT INFORMATION
  Report Type: 
  Country: None (occurrence: None)
  Receive Date: 20100625
  Receipt Date: 20090814
  Transmission Date: 20101027
  Serious: Yes (Hospitalization, Other)
  Sender: FDA-Public Use
  Company Number: JP-ROCHE-642345

PATIENT
  Sex: Male

DRUGS (14)
  1. TOCILIZUMAB [Suspect]
     Indication: RHEUMATOID ARTHRITIS
     Route: 041
     Dates: start: 20080522, end: 20080522
  2. TOCILIZUMAB [Suspect]
     Route: 041
     Dates: start: 20080619, end: 20080619
  3. TOCILIZUMAB [Suspect]
     Route: 041
     Dates: start: 20080717, end: 20080717
  4. TOCILIZUMAB [Suspect]
     Route: 041
     Dates: start: 20080811, end: 20080811
  5. TOCILIZUMAB [Suspect]
     Route: 041
     Dates: start: 20080911, end: 20080911
  6. TOCILIZUMAB [Suspect]
     Route: 041
     Dates: start: 20081009, end: 20081009
  7. TOCILIZUMAB [Suspect]
     Route: 041
     Dates: start: 20081106, end: 20081106
  8. TOCILIZUMAB [Suspect]
     Route: 041
     Dates: start: 20081204, end: 20081204
  9. PREDNISOLONE [Concomitant]
     Dosage: DRUG AS PREDOHAN
     Route: 048
     Dates: start: 20080117, end: 20081204
  10. AZULFIDINE [Concomitant]
     Dosage: DOSE FORM AS ENTERIC
     Route: 048
     Dates: end: 20081217
  11. GASTER [Concomitant]
     Route: 048
  12. MOBIC [Concomitant]
     Route: 048
     Dates: end: 20081217
  13. PREDONINE [Concomitant]
     Route: 048
     Dates: start: 20081204, end: 20081217
  14. COMELIAN [Concomitant]
     Dosage: FORM AS ORAL FORMULATION
     Route: 048
     Dates: start: 20081204, end: 20081217

REACTIONS (7)
  - ARTERIOSCLEROSIS OBLITERANS [None]
  - DERMATITIS INFECTED [None]
  - DIABETIC DERMOPATHY [None]
  - DIABETIC GANGRENE [None]
  - EXTREMITY NECROSIS [None]
  - NEUROSIS [None]
  - STASIS DERMATITIS [None]
